FAERS Safety Report 23404854 (Version 2)
Quarter: 2024Q1

REPORT INFORMATION
  Report Type: Spontaneous
  Country: US (occurrence: US)
  Receive Date: 20240116
  Receipt Date: 20240212
  Transmission Date: 20240409
  Serious: Yes (Hospitalization, Other)
  Sender: FDA-Public Use
  Company Number: US-BRISTOL-MYERS SQUIBB COMPANY-2024-007157

PATIENT
  Age: 93 Year
  Sex: Female
  Weight: 54.88 kg

DRUGS (1)
  1. REVLIMID [Suspect]
     Active Substance: LENALIDOMIDE
     Indication: Myelodysplastic syndrome
     Dosage: DAILY 20D Q 28D
     Route: 048
     Dates: start: 20220101

REACTIONS (2)
  - COVID-19 pneumonia [Recovering/Resolving]
  - Haemoglobin abnormal [Unknown]

NARRATIVE: CASE EVENT DATE: 20231201
